FAERS Safety Report 5243552-4 (Version None)
Quarter: 2007Q1

REPORT INFORMATION
  Report Type: 
  Country: None (occurrence: None)
  Receive Date: 20070222
  Receipt Date: 20070207
  Transmission Date: 20070707
  Serious: Yes (Other)
  Sender: FDA-Public Use
  Company Number: PHEH2006US13044

PATIENT
  Age: 13 Year
  Sex: Female

DRUGS (1)
  1. ZELNORM [Suspect]
     Dosage: 2 MG, QD
     Route: 048

REACTIONS (4)
  - ABDOMINAL DISTENSION [None]
  - BLADDER DISTENSION [None]
  - CATHETER PLACEMENT [None]
  - URINARY RETENTION [None]
